FAERS Safety Report 5830450-8 (Version None)
Quarter: 2008Q3

REPORT INFORMATION
  Report Type: 
  Country: None (occurrence: None)
  Receive Date: 20080801
  Receipt Date: 20080721
  Transmission Date: 20090109
  Serious: Yes (Death, Other)
  Sender: FDA-Public Use
  Company Number: US-PFIZER INC-2007096420

PATIENT
  Sex: Male
  Weight: 85 kg

DRUGS (3)
  1. SUTENT [Suspect]
     Indication: RENAL CELL CARCINOMA
     Route: 048
     Dates: start: 20061030, end: 20071114
  2. SUTENT [Suspect]
     Indication: METASTASES TO BONE
  3. SORAFENIB TOSILATE [Suspect]
     Dates: start: 20060316, end: 20060821

REACTIONS (6)
  - CELLULITIS [None]
  - DISEASE PROGRESSION [None]
  - GASTROINTESTINAL HAEMORRHAGE [None]
  - PATHOLOGICAL FRACTURE [None]
  - RENAL CELL CARCINOMA [None]
  - SKIN ULCER [None]
